FAERS Safety Report 9029817 (Version 2)
Quarter: 2013Q1

REPORT INFORMATION
  Report Type: Spontaneous
  Country: JP (occurrence: JP)
  Receive Date: 20130124
  Receipt Date: 20130311
  Transmission Date: 20140127
  Serious: Yes (Death)
  Sender: FDA-Public Use
  Company Number: JP-GENZYME-CERZ-1002775

PATIENT
  Age: 6 Year
  Sex: Male
  Weight: 22 kg

DRUGS (13)
  1. CEREZYME [Suspect]
     Indication: GAUCHER^S DISEASE
     Dosage: 54.5 U/KG, Q2W
     Route: 042
     Dates: end: 20121017
  2. ZONISAMIDE [Concomitant]
     Indication: GAUCHER^S DISEASE
     Dosage: 100 MG, BID
     Route: 048
     Dates: start: 20121101, end: 20121104
  3. POTASSIUM BROMIDE [Concomitant]
     Indication: GAUCHER^S DISEASE
     Dosage: 700 MG, BID
     Route: 048
     Dates: start: 20121101, end: 20121104
  4. LEVOTHYROXINE [Concomitant]
     Indication: GAUCHER^S DISEASE
     Dosage: 30 MCG, BID
     Route: 048
     Dates: start: 20121101, end: 20121104
  5. PHENYTOIN [Concomitant]
     Indication: GAUCHER^S DISEASE
     Dosage: 210 MG, BID
     Dates: start: 20121101, end: 20121104
  6. TOPIRAMATE [Concomitant]
     Indication: GAUCHER^S DISEASE
     Dosage: 160 MG, BID
     Route: 048
     Dates: start: 20121101, end: 20121104
  7. PHENOBARBITAL [Concomitant]
     Indication: GAUCHER^S DISEASE
     Dosage: 140 MG, BID
     Route: 048
     Dates: start: 20121101, end: 20121104
  8. NITRAZEPAM [Concomitant]
     Indication: GAUCHER^S DISEASE
     Dosage: 2 MG, QD
     Route: 048
     Dates: start: 20121101, end: 20121104
  9. LAMOTRIGINE [Concomitant]
     Indication: GAUCHER^S DISEASE
     Dosage: 150 MG, BID
     Route: 048
     Dates: start: 20121101, end: 20121104
  10. DIAZEPAM [Concomitant]
     Indication: GAUCHER^S DISEASE
     Dosage: 6 MG, QD
     Route: 065
     Dates: start: 20121101, end: 20121104
  11. DANTROLENE SODIUM [Concomitant]
     Indication: GAUCHER^S DISEASE
     Dosage: 60 MG, TID
     Route: 048
     Dates: start: 20121101, end: 20121104
  12. BACLOFEN [Concomitant]
     Indication: GAUCHER^S DISEASE
     Dosage: 20 MG, TID
     Route: 048
     Dates: start: 20121101, end: 20121104
  13. EPERISONE HYDROCHLORIDE [Concomitant]
     Indication: GAUCHER^S DISEASE
     Dosage: 30 MG, TID
     Route: 048
     Dates: start: 20121101, end: 20121104

REACTIONS (1)
  - Respiratory failure [Fatal]
